FAERS Safety Report 20837856 (Version 1)
Quarter: 2022Q2

REPORT INFORMATION
  Report Type: Spontaneous
  Country: US (occurrence: US)
  Receive Date: 20220517
  Receipt Date: 20220517
  Transmission Date: 20220720
  Serious: No
  Sender: FDA-Public Use
  Company Number: US-ALLERGAN-2122113US

PATIENT
  Age: 27 Year
  Sex: Female

DRUGS (2)
  1. KYBELLA [Suspect]
     Active Substance: DEOXYCHOLIC ACID
     Indication: Fat tissue increased
     Dosage: 6 ML, SINGLE
     Route: 058
     Dates: start: 20210405, end: 20210405
  2. KYBELLA [Suspect]
     Active Substance: DEOXYCHOLIC ACID
     Dosage: 6 ML, SINGLE
     Route: 058
     Dates: start: 20210305, end: 20210305

REACTIONS (2)
  - Injection site swelling [Unknown]
  - Injection site oedema [Unknown]
